FAERS Safety Report 17595226 (Version 1)
Quarter: 2020Q1

REPORT INFORMATION
  Report Type: Report from Study
  Country: CO (occurrence: CO)
  Receive Date: 20200328
  Receipt Date: 20200328
  Transmission Date: 20200409
  Serious: Yes (Hospitalization, Other)
  Sender: FDA-Public Use
  Company Number: CO-ROCHE-2494355

PATIENT
  Sex: Female

DRUGS (2)
  1. CYCLOSPORINE. [Concomitant]
     Active Substance: CYCLOSPORINE
  2. CELLCEPT [Suspect]
     Active Substance: MYCOPHENOLATE MOFETIL\MYCOPHENOLATE MOFETIL HYDROCHLORIDE
     Indication: TRANSPLANT
     Route: 065

REACTIONS (15)
  - Internal haemorrhage [Unknown]
  - Oedema [Unknown]
  - Haematoma [Unknown]
  - Wound [Unknown]
  - General physical health deterioration [Unknown]
  - Inguinal hernia [Unknown]
  - Cardiac hypertrophy [Unknown]
  - Haematoma infection [Unknown]
  - Gastric haemorrhage [Unknown]
  - Cardiac failure [Unknown]
  - Renal failure [Unknown]
  - Urinary retention [Unknown]
  - Arrhythmia [Unknown]
  - Pyrexia [Unknown]
  - Hepatic haemorrhage [Unknown]
